FAERS Safety Report 5311186-9 (Version None)
Quarter: 2007Q2

REPORT INFORMATION
  Report Type: 
  Country: None (occurrence: None)
  Receive Date: 20070430
  Receipt Date: 20070416
  Transmission Date: 20071010
  Serious: Yes (Other)
  Sender: FDA-Public Use
  Company Number: JP-ROCHE-358378

PATIENT
  Age: 13 Year
  Sex: Male

DRUGS (13)
  1. TAMIFLU [Suspect]
     Route: 048
     Dates: start: 20040121, end: 20040121
  2. TAMIFLU [Suspect]
     Route: 048
     Dates: start: 20040122, end: 20040125
  3. TAMIFLU [Suspect]
     Route: 048
     Dates: start: 20040126, end: 20040126
  4. ALLERGIN [Concomitant]
     Route: 048
     Dates: start: 20040121, end: 20040124
  5. NEO UMOR [Concomitant]
     Dosage: DRUG REPORTED AS NEOUMOR (RIQUORICE EXTRACT - MAGNESIUM ALUMINOMETAS)
     Route: 048
     Dates: start: 20040121, end: 20040124
  6. ASVERIN [Concomitant]
     Route: 048
     Dates: start: 20040121, end: 20040124
  7. LEFTOSE [Concomitant]
     Route: 048
     Dates: start: 20040121, end: 20040124
  8. BROCIN [Concomitant]
     Indication: COUGH
     Dosage: FORM REPORTED AS DRY SYRUP
     Route: 048
     Dates: start: 20040121, end: 20040124
  9. APRICOT KERNEL WATER [Concomitant]
     Indication: COUGH
     Route: 048
     Dates: start: 20040121, end: 20040124
  10. SIMPLE SYRUP [Concomitant]
     Route: 048
     Dates: start: 20040121, end: 20040124
  11. SP TROCHE [Concomitant]
     Dosage: DRUG REPORTED AS TROCHE.FORM REPORTED AS LOZENGE. ROUTE REPORTED AS OROPHARINGEAL.
     Route: 048
     Dates: start: 20040121, end: 20040124
  12. ISODINE [Concomitant]
     Dosage: GARGLE. TAKEN SOMETIMES PER DAY.
     Route: 002
     Dates: start: 20040121, end: 20040124
  13. CALONAL [Concomitant]
     Indication: PYREXIA
     Dosage: TAKEN AS NEEDED.
     Route: 048
     Dates: start: 20040121

REACTIONS (1)
  - DELIRIUM [None]
